FAERS Safety Report 6077917-8 (Version None)
Quarter: 2009Q1

REPORT INFORMATION
  Report Type: 
  Country: None (occurrence: None)
  Receive Date: 20090213
  Receipt Date: 20090121
  Transmission Date: 20090719
  Serious: Yes (Hospitalization)
  Sender: FDA-Public Use
  Company Number: GB-ROCHE-607284

PATIENT
  Sex: Male

DRUGS (14)
  1. MYCOPHENOLATE MOFETIL [Suspect]
     Indication: ANTI-NEUTROPHIL CYTOPLASMIC ANTIBODY POSITIVE VASCULITIS
     Route: 065
     Dates: start: 20080602, end: 20080728
  2. MYCOPHENOLATE MOFETIL [Suspect]
     Route: 065
     Dates: start: 20081208, end: 20081210
  3. CYCLOPHOSPHAMIDE [Suspect]
     Indication: ANTI-NEUTROPHIL CYTOPLASMIC ANTIBODY POSITIVE VASCULITIS
     Route: 042
     Dates: start: 20080728
  4. ADIZEM XL [Concomitant]
  5. AMPHOTERICIN B [Concomitant]
     Route: 048
  6. ASPIRIN [Concomitant]
  7. AZATHIOPRINE [Concomitant]
  8. CALCICHEW [Concomitant]
  9. COTRIMOXAZOLE [Concomitant]
  10. PREDNISOLONE [Concomitant]
  11. PREGABALIN [Concomitant]
  12. RANITIDINE [Concomitant]
  13. SERETIDE [Concomitant]
     Dosage: DRUG REPORTED AS: ^SERETIDE EVOHALER^
  14. LACRILUBE [Concomitant]
     Dosage: DRUG REPORTED AS LACRILUBE EYE OINTMENT.
     Dates: start: 20081212, end: 20081213

REACTIONS (1)
  - VASCULITIS [None]
